FAERS Safety Report 18407055 (Version 1)
Quarter: 2020Q4

REPORT INFORMATION
  Report Type: Spontaneous
  Country: JP (occurrence: JP)
  Receive Date: 20201020
  Receipt Date: 20201020
  Transmission Date: 20210114
  Serious: Yes (Hospitalization, Other)
  Sender: FDA-Public Use
  Company Number: JP-TAKEDA-2020TJP022898

PATIENT
  Age: 75 Year
  Sex: Male

DRUGS (1)
  1. TAKELDA COMBINATION TABLETS [Suspect]
     Active Substance: ASPIRIN\LANSOPRAZOLE
     Indication: PRODUCT USED FOR UNKNOWN INDICATION
     Dosage: UNK, DOSAGE IS UNKNOWN 1 DOSAGE FORM = 100 MG ASPIRIN + 15 MG LANSOPRAZOLE
     Route: 048
     Dates: start: 201609, end: 201908

REACTIONS (1)
  - Cerebral haemorrhage [Unknown]
